FAERS Safety Report 6972946-1 (Version None)
Quarter: 2010Q3

REPORT INFORMATION
  Report Type: 
  Country: None (occurrence: None)
  Receive Date: 20100909
  Receipt Date: 20100603
  Transmission Date: 20110219
  Serious: No
  Sender: FDA-Public Use
  Company Number: US-KINGPHARMUSA00001-K201000688

PATIENT
  Age: 45 Year
  Sex: Male
  Weight: 65.76 kg

DRUGS (2)
  1. EMBEDA [Suspect]
     Indication: PAIN
     Dosage: 100 MG, QD
     Dates: end: 20100527
  2. EMBEDA [Suspect]
     Dosage: 100 MG, QD
     Dates: start: 20100528

REACTIONS (6)
  - FEELING OF BODY TEMPERATURE CHANGE [None]
  - MALAISE [None]
  - THINKING ABNORMAL [None]
  - TREMOR [None]
  - VOMITING [None]
  - WITHDRAWAL SYNDROME [None]
